FAERS Safety Report 8563227-3 (Version None)
Quarter: 2012Q3

REPORT INFORMATION
  Report Type: 
  Country: None (occurrence: None)
  Receive Date: 20120802
  Receipt Date: 20120726
  Transmission Date: 20120928
  Serious: No
  Sender: FDA-Public Use
  Company Number: US-AMGEN-USASP2012046777

PATIENT
  Age: 56 Year
  Sex: Female

DRUGS (3)
  1. ENBREL [Suspect]
     Indication: PSORIASIS
     Dosage: 50 MG, 2 TIMES/WK
     Dates: start: 20000101
  2. HUMIRA [Concomitant]
     Dosage: UNK
  3. ENBREL [Suspect]
     Indication: ARTHRITIS

REACTIONS (4)
  - ALOPECIA [None]
  - DRUG EFFECT DECREASED [None]
  - ONYCHOCLASIS [None]
  - PSORIASIS [None]
